FAERS Safety Report 8781187 (Version 3)
Quarter: 2012Q4

REPORT INFORMATION
  Report Type: 
  Country: US (occurrence: US)
  Receive Date: 20120913
  Receipt Date: 20121023
  Transmission Date: 20130627
  Serious: Yes (Hospitalization)
  Sender: FDA-Public Use
  Company Number: US-ROCHE-1118703

PATIENT
  Age: 38 Year
  Sex: Female

DRUGS (5)
  1. ACTEMRA [Suspect]
     Indication: RHEUMATOID ARTHRITIS
     Route: 042
     Dates: start: 20120829
  2. SULFASALAZINE [Concomitant]
     Indication: RHEUMATOID ARTHRITIS
     Route: 048
  3. PANTOPRAZOLE [Concomitant]
  4. SAVELLA [Concomitant]
     Indication: FIBROMYALGIA
  5. FOSAMAX [Concomitant]

REACTIONS (6)
  - VIIth nerve paralysis [Recovering/Resolving]
  - Headache [Unknown]
  - Paraesthesia [Unknown]
  - Unevaluable event [Unknown]
  - Pain [Unknown]
  - Dry eye [Unknown]
